FAERS Safety Report 24391186 (Version 1)
Quarter: 2024Q4

REPORT INFORMATION
  Report Type: Spontaneous
  Country: CN (occurrence: CN)
  Receive Date: 20241003
  Receipt Date: 20241003
  Transmission Date: 20250115
  Serious: Yes (Hospitalization)
  Sender: NOVARTIS
  Company Number: CN-002147023-NVSC2024CN192818

PATIENT
  Age: 66 Year
  Sex: Female

DRUGS (1)
  1. TEGRETOL [Suspect]
     Active Substance: CARBAMAZEPINE
     Indication: Neuralgia
     Dosage: 0.2 G, QD
     Route: 048
     Dates: start: 20240918, end: 20240918

REACTIONS (4)
  - Rash maculo-papular [Recovering/Resolving]
  - Hypersensitivity [Recovering/Resolving]
  - Peripheral swelling [Recovering/Resolving]
  - Skin temperature increased [Recovering/Resolving]

NARRATIVE: CASE EVENT DATE: 20240918
